FAERS Safety Report 8617304-9 (Version None)
Quarter: 2012Q3

REPORT INFORMATION
  Report Type: 
  Country: None (occurrence: None)
  Receive Date: 20120823
  Receipt Date: 20120813
  Transmission Date: 20120928
  Serious: No
  Sender: FDA-Public Use
  Company Number: US-ASTRAZENECA-2012SE57287

PATIENT
  Age: 69 Year
  Sex: Female

DRUGS (1)
  1. CRESTOR [Suspect]
     Route: 048

REACTIONS (7)
  - ADVERSE DRUG REACTION [None]
  - SWELLING [None]
  - INSOMNIA [None]
  - PRURITUS [None]
  - DYSPNOEA [None]
  - MALAISE [None]
  - RASH [None]
